FAERS Safety Report 14326516 (Version 1)
Quarter: 2017Q4

REPORT INFORMATION
  Report Type: Spontaneous
  Country: US (occurrence: US)
  Receive Date: 20171226
  Receipt Date: 20171226
  Transmission Date: 20180321
  Serious: No
  Sender: FDA-Public Use
  Company Number: None

PATIENT
  Age: 57 Year
  Sex: Female
  Weight: 93.6 kg

DRUGS (9)
  1. LEVOTHYROXINE. [Concomitant]
     Active Substance: LEVOTHYROXINE
  2. BACLOFEN. [Suspect]
     Active Substance: BACLOFEN
     Indication: MUSCLE TWITCHING
     Dosage: ?          QUANTITY:1 INJECTION(S);OTHER FREQUENCY:CONTINUOUS/BOLUS;?
     Route: 008
     Dates: start: 20171213
  3. HYDROMORPHONE [Concomitant]
     Active Substance: HYDROMORPHONE
  4. MULTIVITAMIN [Concomitant]
     Active Substance: VITAMINS
  5. ENALAPRIL [Concomitant]
     Active Substance: ENALAPRIL
  6. METFORMIN [Concomitant]
     Active Substance: METFORMIN HYDROCHLORIDE
  7. FENOFIBRATE. [Concomitant]
     Active Substance: FENOFIBRATE
  8. GABAPENTIN. [Concomitant]
     Active Substance: GABAPENTIN
  9. PREMPRO [Concomitant]
     Active Substance: ESTROGENS, CONJUGATED\MEDROXYPROGESTERONE ACETATE

REACTIONS (5)
  - Constipation [None]
  - Impaired quality of life [None]
  - Nausea [None]
  - Urinary retention [None]
  - Sedation [None]

NARRATIVE: CASE EVENT DATE: 20171213
